FAERS Safety Report 9886093 (Version 2)
Quarter: 2014Q1

REPORT INFORMATION
  Report Type: Spontaneous
  Country: US (occurrence: US)
  Receive Date: 20140210
  Receipt Date: 20140218
  Transmission Date: 20141002
  Serious: Yes (Other)
  Sender: FDA-Public Use
  Company Number: US-GILEAD-2014-0093990

PATIENT
  Sex: Male

DRUGS (8)
  1. STRIBILD [Suspect]
     Indication: HIV INFECTION
     Dosage: UNK
     Route: 065
     Dates: start: 201401
  2. TRUVADA [Suspect]
     Indication: HIV INFECTION
     Dosage: UNK
     Route: 065
     Dates: end: 201401
  3. PREZISTA [Concomitant]
     Indication: HIV INFECTION
     Dosage: UNK
     Route: 065
     Dates: end: 201401
  4. NORVIR [Concomitant]
     Indication: HIV INFECTION
     Dosage: UNK
     Route: 065
     Dates: end: 201401
  5. EFFEXOR [Concomitant]
     Indication: PRODUCT USED FOR UNKNOWN INDICATION
     Route: 065
  6. DIAZEPAM [Concomitant]
     Indication: PRODUCT USED FOR UNKNOWN INDICATION
     Route: 065
  7. TRAZODONE [Concomitant]
     Indication: PRODUCT USED FOR UNKNOWN INDICATION
     Route: 065
  8. AMBIEN [Concomitant]
     Indication: PRODUCT USED FOR UNKNOWN INDICATION
     Route: 065

REACTIONS (5)
  - Wrist fracture [Unknown]
  - Fall [Unknown]
  - Hyperhidrosis [Recovered/Resolved]
  - Abdominal pain upper [Recovered/Resolved]
  - Diarrhoea [Recovered/Resolved]
